FAERS Safety Report 5691852-6 (Version None)
Quarter: 2008Q1

REPORT INFORMATION
  Report Type: 
  Country: None (occurrence: None)
  Receive Date: 20080331
  Receipt Date: 20080325
  Transmission Date: 20080703
  Serious: Yes (Death)
  Sender: FDA-Public Use
  Company Number: 2008-174279-NL

PATIENT
  Age: 50 Year
  Sex: Male

DRUGS (3)
  1. ROCURONIUM BROMIDE [Suspect]
     Dosage: INTRAVENOUS (NOS)
     Route: 042
     Dates: start: 20080318
  2. PROPOFOL [Concomitant]
  3. REMIFENTANIL HYDROCHLORIDE [Concomitant]

REACTIONS (3)
  - BLOOD PRESSURE DECREASED [None]
  - CARDIAC FAILURE [None]
  - TACHYCARDIA [None]
